FAERS Safety Report 23100970 (Version 1)
Quarter: 2023Q4

REPORT INFORMATION
  Report Type: Spontaneous
  Country: US (occurrence: None)
  Receive Date: 20231021
  Receipt Date: 20231021
  Transmission Date: 20240110
  Serious: Yes (Hospitalization)
  Sender: FDA-Public Use
  Company Number: None

PATIENT
  Age: 68 Year
  Sex: Male
  Weight: 115 kg

DRUGS (1)
  1. IOHEXOL [Suspect]
     Active Substance: IOHEXOL
     Dosage: FREQUENCY : ONCE;?
     Route: 042
     Dates: start: 20230328, end: 20230328

REACTIONS (3)
  - Anaphylactic reaction [None]
  - Angioedema [None]
  - Contrast media reaction [None]

NARRATIVE: CASE EVENT DATE: 20230328
